FAERS Safety Report 21385548 (Version 4)
Quarter: 2023Q2

REPORT INFORMATION
  Report Type: Report from Study
  Country: US (occurrence: US)
  Receive Date: 20220928
  Receipt Date: 20230420
  Transmission Date: 20230721
  Serious: Yes (Other)
  Sender: FDA-Public Use
  Company Number: US-ABBVIE-4131673

PATIENT
  Age: 48 Year
  Sex: Female

DRUGS (4)
  1. RINVOQ [Suspect]
     Active Substance: UPADACITINIB
     Indication: Rheumatoid arthritis
     Dosage: LAST ADMINISTRATION DOSE DATE:2022?FORM STRENGTH: 15 MILLIGRAM
     Route: 048
     Dates: start: 20220818
  2. RINVOQ [Suspect]
     Active Substance: UPADACITINIB
     Indication: Rheumatoid arthritis
     Dosage: FIRST ADMINISTRATION DOSE AND LAST ADMINSITARTION DOSE ATE:2022?FORM STRENGTH: 15 MILLIGRAM
     Route: 048
  3. RINVOQ [Suspect]
     Active Substance: UPADACITINIB
     Indication: Rheumatoid arthritis
     Dosage: FIRST ADMINISTRATION DOSE DATE:2022
     Route: 048
  4. RINVOQ [Suspect]
     Active Substance: UPADACITINIB
     Indication: Rheumatoid arthritis
     Dosage: FORM STRENGTH: 15 MILLIGRAM?LAST ADMINISTRATION DOSE DATE:2022
     Route: 048
     Dates: start: 202208

REACTIONS (14)
  - Wrist surgery [Unknown]
  - Gait disturbance [Unknown]
  - Pain [Unknown]
  - Musculoskeletal stiffness [Recovered/Resolved]
  - Post procedural complication [Unknown]
  - Pain in extremity [Unknown]
  - Pain in extremity [Unknown]
  - Arthritis [Unknown]
  - Grip strength decreased [Unknown]
  - Bone operation [Unknown]
  - Medical device implantation [Unknown]
  - Swelling [Unknown]
  - Sinusitis [Recovering/Resolving]
  - Cough [Not Recovered/Not Resolved]

NARRATIVE: CASE EVENT DATE: 20220901
